FAERS Safety Report 6014814-8 (Version None)
Quarter: 2008Q4

REPORT INFORMATION
  Report Type: 
  Country: None (occurrence: None)
  Receive Date: 20081219
  Receipt Date: 20081209
  Transmission Date: 20090506
  Serious: Yes (Hospitalization, Other)
  Sender: FDA-Public Use
  Company Number: BE-PFIZER INC-2008093970

PATIENT

DRUGS (5)
  1. CELEBREX [Suspect]
     Indication: OSTEOARTHRITIS
     Dosage: 100 MG, 1X/DAY
     Route: 048
     Dates: start: 20070101, end: 20080901
  2. CORDARONE [Concomitant]
  3. XANAX [Concomitant]
  4. DAFALGAN [Concomitant]
  5. MICARDIS HCT [Concomitant]

REACTIONS (2)
  - ATRIAL FIBRILLATION [None]
  - GASTRIC ULCER [None]
